FAERS Safety Report 10219181 (Version 1)
Quarter: 2014Q2

REPORT INFORMATION
  Report Type: Spontaneous
  Country: DE (occurrence: DE)
  Receive Date: 20140605
  Receipt Date: 20140605
  Transmission Date: 20141212
  Serious: Yes (Other)
  Sender: FDA-Public Use
  Company Number: GXKR2014DE002172

PATIENT
  Age: 59 Year
  Sex: Female

DRUGS (2)
  1. ESTRAMON CONTI [Suspect]
     Indication: SLEEP DISORDER
     Dosage: FOR YEARS THE PATIENT HAD APPLIED PATCH ON HER BELLY
     Route: 062
  2. ESTRADOT [Suspect]
     Indication: SLEEP DISORDER
     Dosage: OR YEARS THE PATIENT HAD APPLIED PATCH ON HER BELLY

REACTIONS (1)
  - Malignant peritoneal neoplasm [Unknown]
